FAERS Safety Report 8069769-1 (Version None)
Quarter: 2012Q1

REPORT INFORMATION
  Report Type: 
  Country: None (occurrence: None)
  Receive Date: 20120125
  Receipt Date: 20120120
  Transmission Date: 20120608
  Serious: No
  Sender: FDA-Public Use
  Company Number: US-PFIZER INC-2012017368

PATIENT
  Sex: Female
  Weight: 52.154 kg

DRUGS (4)
  1. IBUPROFEN (ADVIL) [Suspect]
     Indication: HEADACHE
     Dosage: UNK, AS NEEDED
     Route: 048
     Dates: end: 20120120
  2. NASONEX [Concomitant]
     Indication: SEASONAL ALLERGY
     Dosage: UNK, 1-2 TIMES A DAY
     Route: 045
  3. IBUPROFEN (ADVIL) [Suspect]
     Indication: DYSMENORRHOEA
  4. LOESTRIN 1.5/30 [Concomitant]
     Indication: CONTRACEPTION
     Dosage: UNK, DAILY

REACTIONS (1)
  - HYPERSENSITIVITY [None]
